FAERS Safety Report 4950167-1 (Version None)
Quarter: 2006Q1

REPORT INFORMATION
  Report Type: 
  Country: None (occurrence: None)
  Receive Date: 20060322
  Receipt Date: 20060310
  Transmission Date: 20060701
  Serious: Yes (Other)
  Sender: FDA-Public Use
  Company Number: US-JNJFOC-20051106576

PATIENT
  Sex: Female
  Weight: 58.97 kg

DRUGS (3)
  1. REMICADE [Suspect]
     Indication: CROHN'S DISEASE
     Route: 042
  2. FLAGYL [Concomitant]
  3. CIPRO [Concomitant]

REACTIONS (4)
  - BLOOD PRESSURE DECREASED [None]
  - CROHN'S DISEASE [None]
  - TONGUE DISCOLOURATION [None]
  - TONGUE DISORDER [None]
